FAERS Safety Report 20680868 (Version 2)
Quarter: 2022Q2

REPORT INFORMATION
  Report Type: Spontaneous
  Country: US (occurrence: US)
  Receive Date: 20220406
  Receipt Date: 20220407
  Transmission Date: 20220721
  Serious: Yes (Other)
  Sender: FDA-Public Use
  Company Number: US-ELI_LILLY_AND_COMPANY-US202203012455

PATIENT
  Age: 67 Year
  Sex: Male

DRUGS (10)
  1. GLUCAGON [Suspect]
     Active Substance: GLUCAGON
     Indication: Blood glucose decreased
     Dosage: 1 G, UNKNOWN
     Route: 065
  2. GLUCAGON [Suspect]
     Active Substance: GLUCAGON
     Indication: Blood glucose decreased
     Dosage: 1 G, UNKNOWN
     Route: 065
  3. GLUCAGON [Suspect]
     Active Substance: GLUCAGON
     Indication: Blood glucose decreased
     Dosage: 1 G, UNKNOWN
     Route: 065
  4. GLUCAGON [Suspect]
     Active Substance: GLUCAGON
     Indication: Blood glucose decreased
     Dosage: 1 G, UNKNOWN
     Route: 065
  5. GLUCAGON [Suspect]
     Active Substance: GLUCAGON
     Dosage: 1 G, UNKNOWN
     Route: 065
  6. GLUCAGON [Suspect]
     Active Substance: GLUCAGON
     Dosage: 1 G, UNKNOWN
     Route: 065
  7. GLUCAGON [Suspect]
     Active Substance: GLUCAGON
     Dosage: 1 G, UNKNOWN
     Route: 065
  8. GLUCAGON [Suspect]
     Active Substance: GLUCAGON
     Dosage: 1 G, UNKNOWN
     Route: 065
  9. GLUCAGON [Suspect]
     Active Substance: GLUCAGON
     Dosage: 1 G, UNKNOWN
     Route: 065
  10. GLUCAGON [Suspect]
     Active Substance: GLUCAGON
     Dosage: 1 G, UNKNOWN
     Route: 065

REACTIONS (5)
  - Hypoglycaemic unconsciousness [Recovered/Resolved]
  - Hypoglycaemic unconsciousness [Recovered/Resolved]
  - Hypoglycaemia [Recovered/Resolved]
  - Hypoglycaemia [Recovered/Resolved]
  - Overdose [Unknown]

NARRATIVE: CASE EVENT DATE: 20220309
